FAERS Safety Report 13434925 (Version 1)
Quarter: 2017Q2

REPORT INFORMATION
  Report Type: Spontaneous
  Country: US (occurrence: US)
  Receive Date: 20170412
  Receipt Date: 20170412
  Transmission Date: 20170830
  Serious: No
  Sender: FDA-Public Use
  Company Number: US-SA-2016SA083036

PATIENT
  Sex: Female

DRUGS (3)
  1. AMLODIPINE [Concomitant]
     Active Substance: AMLODIPINE BESYLATE
     Route: 065
  2. AMLODIPINE [Concomitant]
     Active Substance: AMLODIPINE BESYLATE
     Route: 065
  3. ALLEGRA ALLERGY [Suspect]
     Active Substance: FEXOFENADINE HYDROCHLORIDE
     Dosage: 11 PM
     Route: 065

REACTIONS (7)
  - Flushing [Unknown]
  - Erythema [Unknown]
  - Skin discolouration [Unknown]
  - Feeling abnormal [Unknown]
  - Rash [Unknown]
  - Drug ineffective [Unknown]
  - Pruritus [Unknown]
